FAERS Safety Report 15048026 (Version 1)
Quarter: 2018Q2

REPORT INFORMATION
  Report Type: Report from Study
  Country: None (occurrence: US)
  Receive Date: 20180622
  Receipt Date: 20180622
  Transmission Date: 20180711
  Serious: Yes (Hospitalization)
  Sender: FDA-Public Use
  Company Number: US-ABBVIE-18K-163-2395113-00

PATIENT
  Sex: Male

DRUGS (1)
  1. HUMIRA [Suspect]
     Active Substance: ADALIMUMAB
     Indication: CROHN^S DISEASE
     Dosage: SKIPPED HUMIRA DOSE ON 11 JUN 2018 AND WOULD SKIP DOSE SCHEDULED FOR 25 JUN 2018
     Route: 058
     Dates: end: 2018

REACTIONS (2)
  - Abdominal adhesions [Unknown]
  - Small intestinal stenosis [Unknown]
